FAERS Safety Report 10921145 (Version 1)
Quarter: 2015Q1

REPORT INFORMATION
  Report Type: Spontaneous
  Country: SE (occurrence: SE)
  Receive Date: 20150317
  Receipt Date: 20150317
  Transmission Date: 20150721
  Serious: Yes (Other)
  Sender: FDA-Public Use
  Company Number: SE-JNJFOC-20150302206

PATIENT
  Age: 31 Year
  Sex: Male

DRUGS (2)
  1. ROGAINE FORTE [Suspect]
     Active Substance: MINOXIDIL
     Route: 065
  2. ROGAINE FORTE [Suspect]
     Active Substance: MINOXIDIL
     Indication: ALOPECIA
     Dosage: PACK SIZE 1X60 ML (1 MONTH OF USE)
     Route: 065
     Dates: start: 201502, end: 201502

REACTIONS (4)
  - Superficial vein prominence [Not Recovered/Not Resolved]
  - Dermatitis allergic [Not Recovered/Not Resolved]
  - Pruritus [Not Recovered/Not Resolved]
  - Skin swelling [Not Recovered/Not Resolved]

NARRATIVE: CASE EVENT DATE: 201502
